FAERS Safety Report 9366258 (Version 1)
Quarter: 2013Q2

REPORT INFORMATION
  Report Type: Spontaneous
  Country: US (occurrence: US)
  Receive Date: 20130625
  Receipt Date: 20130625
  Transmission Date: 20140414
  Serious: No
  Sender: FDA-Public Use
  Company Number: US-GLAXOSMITHKLINE-A0976146A

PATIENT
  Age: 74 Year
  Sex: Female

DRUGS (8)
  1. VERAMYST [Suspect]
     Indication: RHINITIS ALLERGIC
     Dosage: 4SPR PER DAY
     Route: 045
     Dates: start: 20120412
  2. FEMARA [Concomitant]
  3. LISINOPRIL [Concomitant]
  4. METOPROLOL [Concomitant]
  5. CALCIUM [Concomitant]
  6. RECLAST [Concomitant]
  7. VITAMIN D [Concomitant]
  8. FISH OIL [Concomitant]

REACTIONS (1)
  - Drug ineffective [Not Recovered/Not Resolved]
